FAERS Safety Report 5418185-7 (Version None)
Quarter: 2007Q3

REPORT INFORMATION
  Report Type: 
  Country: None (occurrence: None)
  Receive Date: 20070817
  Receipt Date: 20070810
  Transmission Date: 20080115
  Serious: Yes (Hospitalization)
  Sender: FDA-Public Use
  Company Number: US-ELI_LILLY_AND_COMPANY-US200708002366

PATIENT
  Age: 72 Year
  Sex: Female

DRUGS (5)
  1. BYETTA [Suspect]
     Indication: TYPE 2 DIABETES MELLITUS
     Dosage: 5 UG, 2/D
     Route: 058
     Dates: start: 20070101, end: 20070201
  2. BYETTA [Suspect]
     Dosage: 10 UG, 2/D
     Route: 058
     Dates: start: 20070201, end: 20070101
  3. BYETTA [Suspect]
     Dosage: 5 UG, 2/D
     Route: 058
     Dates: start: 20070101
  4. GLYBURIDE [Concomitant]
     Indication: TYPE 2 DIABETES MELLITUS
     Dosage: 5 MG, DAILY (1/D)
     Dates: end: 20070601
  5. GLYBURIDE [Concomitant]
     Dosage: 5 MG, AS NEEDED
     Dates: start: 20070601

REACTIONS (6)
  - BLOOD GLUCOSE DECREASED [None]
  - BLOOD GLUCOSE INCREASED [None]
  - BLOOD PRESSURE INCREASED [None]
  - DIZZINESS [None]
  - NAUSEA [None]
  - PERIPHERAL ARTERIAL OCCLUSIVE DISEASE [None]
